FAERS Safety Report 7866414-2 (Version None)
Quarter: 2011Q4

REPORT INFORMATION
  Report Type: 
  Country: None (occurrence: None)
  Receive Date: 20111028
  Receipt Date: 20110613
  Transmission Date: 20120403
  Serious: No
  Sender: FDA-Public Use
  Company Number: US-GLAXOSMITHKLINE-A0931327A

PATIENT
  Age: 91 Year
  Sex: Female

DRUGS (6)
  1. VITAMIN D [Concomitant]
  2. FISH OIL [Concomitant]
  3. ANTI-CHOLESTEROL MEDICATION [Concomitant]
  4. ADVAIR DISKUS 100/50 [Suspect]
     Indication: DYSPNOEA
     Dosage: 1PUFF TWICE PER DAY
     Route: 055
     Dates: start: 20080101, end: 20110501
  5. VITAMIN-MINERAL COMPOUND TAB [Concomitant]
  6. BLOOD PRESSURE MEDICATION [Concomitant]

REACTIONS (2)
  - DYSPHONIA [None]
  - APHONIA [None]
